FAERS Safety Report 5513576-8 (Version None)
Quarter: 2007Q4

REPORT INFORMATION
  Report Type: 
  Country: None (occurrence: None)
  Receive Date: 20071108
  Receipt Date: 20071029
  Transmission Date: 20080405
  Serious: Yes (Hospitalization)
  Sender: FDA-Public Use
  Company Number: ADE2007-0030

PATIENT
  Age: 74 Year
  Sex: Male
  Weight: 60 kg

DRUGS (2)
  1. CIPROFLOXACIN HCL [Suspect]
     Dosage: 750MG TWICE DAILY PO
     Route: 048
  2. UNSPECIFIED LOW-DOSE ANGIOTENSIN-CONVERTING ENZYME INHIBITOR: INITIATE [Concomitant]

REACTIONS (3)
  - KIDNEY FIBROSIS [None]
  - RENAL ISCHAEMIA [None]
  - RENAL TUBULAR DISORDER [None]
